FAERS Safety Report 4977985-8 (Version None)
Quarter: 2006Q2

REPORT INFORMATION
  Report Type: 
  Country: None (occurrence: None)
  Receive Date: 20060420
  Receipt Date: 20060414
  Transmission Date: 20061013
  Serious: Yes (Death)
  Sender: FDA-Public Use
  Company Number: IT-BRACCO-BCM-001010

PATIENT
  Age: 74 Year
  Sex: Female

DRUGS (3)
  1. MULTIHANCE [Suspect]
     Route: 042
     Dates: start: 20060412, end: 20060412
  2. MULTIHANCE [Suspect]
     Route: 042
     Dates: start: 20060412, end: 20060412
  3. CHEMOTHERAPY [Concomitant]
     Route: 050

REACTIONS (6)
  - ANAPHYLACTOID SHOCK [None]
  - CARDIAC ARREST [None]
  - CYANOSIS [None]
  - DYSPNOEA [None]
  - HYPOTENSION [None]
  - PULSE ABSENT [None]
